FAERS Safety Report 12331008 (Version 2)
Quarter: 2016Q2

REPORT INFORMATION
  Report Type: Spontaneous
  Country: GB (occurrence: None)
  Receive Date: 20160503
  Receipt Date: 20160627
  Transmission Date: 20160815
  Serious: Yes (Hospitalization, Other)
  Sender: FDA-Public Use
  Company Number: GB2016K1750SPO

PATIENT
  Age: 89 Year

DRUGS (10)
  1. PARACETAMOL [Concomitant]
     Active Substance: ACETAMINOPHEN
  2. THIAMINE. [Concomitant]
     Active Substance: THIAMINE
  3. VITAMIN B SUBSTANCES [Concomitant]
  4. FLUOXETINE [Suspect]
     Active Substance: FLUOXETINE HYDROCHLORIDE
     Route: 048
  5. LANSOPRAZOLE GENERIC (LANSOPRAZOLE) UNKNOWN [Suspect]
     Active Substance: LANSOPRAZOLE
     Route: 048
  6. CODEINE [Concomitant]
     Active Substance: CODEINE
  7. FOLIC ACID. [Concomitant]
     Active Substance: FOLIC ACID
  8. ASPIRIN. [Concomitant]
     Active Substance: ASPIRIN
  9. BISOPROLOL [Concomitant]
     Active Substance: BISOPROLOL
  10. ATORVASTATIN [Concomitant]
     Active Substance: ATORVASTATIN

REACTIONS (7)
  - Urosepsis [None]
  - Pulmonary sepsis [None]
  - Electrocardiogram QT prolonged [None]
  - Blood magnesium decreased [None]
  - Blood calcium decreased [None]
  - Blood potassium decreased [None]
  - Sepsis [None]
